FAERS Safety Report 8610879-5 (Version None)
Quarter: 2012Q3

REPORT INFORMATION
  Report Type: 
  Country: None (occurrence: None)
  Receive Date: 20120808
  Receipt Date: 20120731
  Transmission Date: 20120928
  Serious: Yes (Hospitalization)
  Sender: FDA-Public Use
  Company Number: ENT 2012-0112

PATIENT
  Age: 81 Year
  Sex: Male

DRUGS (6)
  1. METOPROLOL (METAPROLOL) [Concomitant]
  2. OMEPRAZOLE [Concomitant]
  3. CARBILVO [Concomitant]
  4. COMTAN [Suspect]
     Dosage: 600 MG, 3 IN 1 D
  5. JANUVIA [Concomitant]
  6. TINSULOSIA [Concomitant]

REACTIONS (1)
  - CEREBROVASCULAR ACCIDENT [None]
